FAERS Safety Report 7067522-9 (Version None)
Quarter: 2010Q4

REPORT INFORMATION
  Report Type: 
  Country: None (occurrence: None)
  Receive Date: 20101028
  Receipt Date: 20091203
  Transmission Date: 20110411
  Serious: No
  Sender: FDA-Public Use
  Company Number: US-PFIZER INC-2009300495

PATIENT
  Sex: Female

DRUGS (1)
  1. LOMOTIL [Suspect]

REACTIONS (5)
  - ABDOMINAL DISCOMFORT [None]
  - DIARRHOEA [None]
  - EMOTIONAL DISORDER [None]
  - FLATULENCE [None]
  - MALAISE [None]
